FAERS Safety Report 7845716-X (Version None)
Quarter: 2011Q4

REPORT INFORMATION
  Report Type: 
  Country: None (occurrence: None)
  Receive Date: 20111025
  Receipt Date: 20111021
  Transmission Date: 20120403
  Serious: Yes (Other)
  Sender: FDA-Public Use
  Company Number: VE-ABBOTT-11P-178-0867256-00

PATIENT
  Sex: Female

DRUGS (3)
  1. METHROTEXATE [Concomitant]
     Indication: RHEUMATOID ARTHRITIS
     Route: 065
  2. PREDNISONE [Concomitant]
     Indication: RHEUMATOID ARTHRITIS
     Route: 065
  3. HUMIRA [Suspect]
     Indication: RHEUMATOID ARTHRITIS
     Route: 058
     Dates: start: 20071024, end: 20111004

REACTIONS (5)
  - HEPATITIS [None]
  - INJURY [None]
  - PURULENT DISCHARGE [None]
  - LOCALISED INFECTION [None]
  - URINARY TRACT INFECTION [None]
